FAERS Safety Report 8258413 (Version 4)
Quarter: 2013Q2

REPORT INFORMATION
  Report Type: Spontaneous
  Country: US (occurrence: None)
  Receive Date: 20111116
  Receipt Date: 20130624
  Transmission Date: 20140414
  Serious: Yes (Hospitalization)
  Sender: FDA-Public Use
  Company Number: 2011-4460

PATIENT
  Age: 4 Year
  Sex: Female

DRUGS (1)
  1. INCRELEX [Suspect]
     Indication: PRODUCT USED FOR UNKNOWN INDICATION
     Dosage: 0.24 MG/KG (0.24 MG/KG,1 IN 1 D)
     Dates: start: 2010

REACTIONS (2)
  - Osteonecrosis [None]
  - Gait disturbance [None]
